FAERS Safety Report 6884135-X (Version None)
Quarter: 2010Q3

REPORT INFORMATION
  Report Type: 
  Country: None (occurrence: None)
  Receive Date: 20100729
  Receipt Date: 20100621
  Transmission Date: 20110219
  Serious: No
  Sender: FDA-Public Use
  Company Number: US-BAYER-201026561NA

PATIENT
  Age: 62 Year
  Sex: Male

DRUGS (2)
  1. MAGNEVIST [Suspect]
     Indication: NUCLEAR MAGNETIC RESONANCE IMAGING ABDOMINAL
     Dosage: AS USED: 10 ML  UNIT DOSE: 100 ML
     Route: 042
     Dates: start: 20100618, end: 20100618
  2. EOVIST [Suspect]
     Indication: NUCLEAR MAGNETIC RESONANCE IMAGING ABDOMINAL
     Dosage: AS USED: 7 ML
     Route: 042
     Dates: start: 20100618, end: 20100618

REACTIONS (1)
  - NAUSEA [None]
